FAERS Safety Report 5932155-1 (Version None)
Quarter: 2008Q4

REPORT INFORMATION
  Report Type: 
  Country: None (occurrence: None)
  Receive Date: 20081022
  Receipt Date: 20081008
  Transmission Date: 20090506
  Serious: Yes (Other)
  Sender: FDA-Public Use
  Company Number: GB-1167536

PATIENT
  Age: 24 Month
  Sex: Female

DRUGS (2)
  1. PHENYLEPHRINE (PHENYLEPHRINE) 2.5% SOLUTION EYE DROPS, SOLUTION [Suspect]
     Indication: OPHTHALMOLOGICAL EXAMINATION
     Dosage: TWICE OU
     Route: 047
  2. CYCLOPENTOLATE HCL [Suspect]
     Indication: OPHTHALMOLOGICAL EXAMINATION
     Dosage: TWICE OU
     Route: 047

REACTIONS (1)
  - ANGLE CLOSURE GLAUCOMA [None]
